FAERS Safety Report 25326001 (Version 2)
Quarter: 2025Q2

REPORT INFORMATION
  Report Type: Spontaneous
  Country: US (occurrence: US)
  Receive Date: 20250516
  Receipt Date: 20250618
  Transmission Date: 20250716
  Serious: No
  Sender: MYLAN
  Company Number: US-MYLANLABS-2025M1038798

PATIENT
  Age: 78 Year
  Sex: Female
  Weight: 79.38 kg

DRUGS (48)
  1. TYRVAYA [Suspect]
     Active Substance: VARENICLINE TARTRATE
     Indication: Dry eye
     Dosage: 0.03 MILLIGRAM, BID (ONE SPRAY IN EACH NOSTRIL, TWICE DAILY, 12 HRS APART)
  2. TYRVAYA [Suspect]
     Active Substance: VARENICLINE TARTRATE
     Dosage: 0.03 MILLIGRAM, BID (ONE SPRAY IN EACH NOSTRIL, TWICE DAILY, 12 HRS APART)
     Route: 045
  3. TYRVAYA [Suspect]
     Active Substance: VARENICLINE TARTRATE
     Dosage: 0.03 MILLIGRAM, BID (ONE SPRAY IN EACH NOSTRIL, TWICE DAILY, 12 HRS APART)
     Route: 045
  4. TYRVAYA [Suspect]
     Active Substance: VARENICLINE TARTRATE
     Dosage: 0.03 MILLIGRAM, BID (ONE SPRAY IN EACH NOSTRIL, TWICE DAILY, 12 HRS APART)
  5. AZELASTINE [Concomitant]
     Active Substance: AZELASTINE
     Indication: Hypersensitivity
  6. AZELASTINE [Concomitant]
     Active Substance: AZELASTINE
     Route: 065
  7. AZELASTINE [Concomitant]
     Active Substance: AZELASTINE
     Route: 065
  8. AZELASTINE [Concomitant]
     Active Substance: AZELASTINE
  9. FISH OIL [Concomitant]
     Active Substance: FISH OIL
  10. FISH OIL [Concomitant]
     Active Substance: FISH OIL
     Route: 065
  11. FISH OIL [Concomitant]
     Active Substance: FISH OIL
     Route: 065
  12. FISH OIL [Concomitant]
     Active Substance: FISH OIL
  13. ASPIRIN [Concomitant]
     Active Substance: ASPIRIN
  14. ASPIRIN [Concomitant]
     Active Substance: ASPIRIN
     Route: 065
  15. ASPIRIN [Concomitant]
     Active Substance: ASPIRIN
     Route: 065
  16. ASPIRIN [Concomitant]
     Active Substance: ASPIRIN
  17. XYZAL [Concomitant]
     Active Substance: LEVOCETIRIZINE DIHYDROCHLORIDE
     Indication: Hypersensitivity
     Dosage: UNK, PM (AT NIGHT)
  18. XYZAL [Concomitant]
     Active Substance: LEVOCETIRIZINE DIHYDROCHLORIDE
     Dosage: UNK, PM (AT NIGHT)
     Route: 065
  19. XYZAL [Concomitant]
     Active Substance: LEVOCETIRIZINE DIHYDROCHLORIDE
     Dosage: UNK, PM (AT NIGHT)
     Route: 065
  20. XYZAL [Concomitant]
     Active Substance: LEVOCETIRIZINE DIHYDROCHLORIDE
     Dosage: UNK, PM (AT NIGHT)
  21. VALSARTAN [Concomitant]
     Active Substance: VALSARTAN
  22. VALSARTAN [Concomitant]
     Active Substance: VALSARTAN
     Route: 065
  23. VALSARTAN [Concomitant]
     Active Substance: VALSARTAN
     Route: 065
  24. VALSARTAN [Concomitant]
     Active Substance: VALSARTAN
  25. SYNTHROID [Concomitant]
     Active Substance: LEVOTHYROXINE SODIUM
  26. SYNTHROID [Concomitant]
     Active Substance: LEVOTHYROXINE SODIUM
     Route: 065
  27. SYNTHROID [Concomitant]
     Active Substance: LEVOTHYROXINE SODIUM
     Route: 065
  28. SYNTHROID [Concomitant]
     Active Substance: LEVOTHYROXINE SODIUM
  29. LIPITOR [Concomitant]
     Active Substance: ATORVASTATIN CALCIUM
  30. LIPITOR [Concomitant]
     Active Substance: ATORVASTATIN CALCIUM
     Route: 065
  31. LIPITOR [Concomitant]
     Active Substance: ATORVASTATIN CALCIUM
     Route: 065
  32. LIPITOR [Concomitant]
     Active Substance: ATORVASTATIN CALCIUM
  33. BIOTIN [Concomitant]
     Active Substance: BIOTIN
  34. BIOTIN [Concomitant]
     Active Substance: BIOTIN
     Route: 065
  35. BIOTIN [Concomitant]
     Active Substance: BIOTIN
     Route: 065
  36. BIOTIN [Concomitant]
     Active Substance: BIOTIN
  37. VITAMIN D [Concomitant]
     Active Substance: VITAMIN D NOS
  38. VITAMIN D [Concomitant]
     Active Substance: VITAMIN D NOS
     Route: 065
  39. VITAMIN D [Concomitant]
     Active Substance: VITAMIN D NOS
     Route: 065
  40. VITAMIN D [Concomitant]
     Active Substance: VITAMIN D NOS
  41. VITAMIN B COMPLEX [Concomitant]
     Active Substance: CYANOCOBALAMIN\DEXPANTHENOL\NIACINAMIDE\PYRIDOXINE HYDROCHLORIDE\RIBOFLAVIN 5^-PHOSPHATE SODIUM\THIA
  42. VITAMIN B COMPLEX [Concomitant]
     Active Substance: CYANOCOBALAMIN\DEXPANTHENOL\NIACINAMIDE\PYRIDOXINE HYDROCHLORIDE\RIBOFLAVIN 5^-PHOSPHATE SODIUM\THIA
     Route: 065
  43. VITAMIN B COMPLEX [Concomitant]
     Active Substance: CYANOCOBALAMIN\DEXPANTHENOL\NIACINAMIDE\PYRIDOXINE HYDROCHLORIDE\RIBOFLAVIN 5^-PHOSPHATE SODIUM\THIA
     Route: 065
  44. VITAMIN B COMPLEX [Concomitant]
     Active Substance: CYANOCOBALAMIN\DEXPANTHENOL\NIACINAMIDE\PYRIDOXINE HYDROCHLORIDE\RIBOFLAVIN 5^-PHOSPHATE SODIUM\THIA
  45. CALCIUM [Concomitant]
     Active Substance: CALCIUM
  46. CALCIUM [Concomitant]
     Active Substance: CALCIUM
     Route: 065
  47. CALCIUM [Concomitant]
     Active Substance: CALCIUM
     Route: 065
  48. CALCIUM [Concomitant]
     Active Substance: CALCIUM

REACTIONS (4)
  - Paranasal sinus discomfort [Recovering/Resolving]
  - Rhinorrhoea [Recovered/Resolved]
  - Lacrimation increased [Unknown]
  - Wrong technique in product usage process [Unknown]

NARRATIVE: CASE EVENT DATE: 20250502
